FAERS Safety Report 23987928 (Version 6)
Quarter: 2025Q3

REPORT INFORMATION
  Report Type: Report from Study
  Country: US (occurrence: US)
  Receive Date: 20240619
  Receipt Date: 20250909
  Transmission Date: 20251020
  Serious: Yes (Hospitalization, Other)
  Sender: TAKEDA
  Company Number: US-TAKEDA-2023TUS120787

PATIENT
  Sex: Male
  Weight: 79 kg

DRUGS (22)
  1. GLASSIA [Suspect]
     Active Substance: .ALPHA.1-PROTEINASE INHIBITOR HUMAN
     Indication: Alpha-1 antitrypsin deficiency
     Dosage: 90 MG/KG, 1/WEEK
  2. GLASSIA [Suspect]
     Active Substance: .ALPHA.1-PROTEINASE INHIBITOR HUMAN
  3. EPINEPHRINE [Concomitant]
     Active Substance: EPINEPHRINE
  4. FISH OIL [Concomitant]
     Active Substance: FISH OIL
  5. HERBALS\SAW PALMETTO [Concomitant]
     Active Substance: HERBALS\SAW PALMETTO
  6. SODIUM CHLORIDE [Concomitant]
     Active Substance: SODIUM CHLORIDE
  7. FLAXSEED [Concomitant]
     Active Substance: FLAX SEED
  8. LIDOCAINE [Concomitant]
     Active Substance: LIDOCAINE
  9. METOPROLOL SUCCINATE [Concomitant]
     Active Substance: METOPROLOL SUCCINATE
  10. ZINC SULFATE [Concomitant]
     Active Substance: ZINC SULFATE
  11. DIPHENHYDRAMINE HYDROCHLORIDE [Concomitant]
     Active Substance: DIPHENHYDRAMINE HYDROCHLORIDE
  12. LYSINE [Concomitant]
     Active Substance: LYSINE
  13. ELIQUIS [Concomitant]
     Active Substance: APIXABAN
  14. AMOXICILLIN [Concomitant]
     Active Substance: AMOXICILLIN
  15. ROSUVASTATIN CALCIUM [Concomitant]
     Active Substance: ROSUVASTATIN CALCIUM
  16. FLUTICASONE PROPIONATE [Concomitant]
     Active Substance: FLUTICASONE PROPIONATE
  17. MUCINEX DM [Concomitant]
     Active Substance: DEXTROMETHORPHAN HYDROBROMIDE\GUAIFENESIN
  18. SODIUM CHLORIDE [Concomitant]
     Active Substance: SODIUM CHLORIDE
  19. FLONASE ALLERGY RELIEF [Concomitant]
     Active Substance: FLUTICASONE PROPIONATE
  20. PNEUMOVAX 23 [Concomitant]
     Active Substance: PNEUMOCOCCAL VACCINE, POLYVALENT 23
  21. FLUARIX NOS [Concomitant]
     Active Substance: INFLUENZA VIRUS VACCINE
  22. Bromfenac;Prednisolone [Concomitant]

REACTIONS (9)
  - Respiratory tract infection [Unknown]
  - Cataract [Unknown]
  - Productive cough [Unknown]
  - COVID-19 [Unknown]
  - Ear pain [Unknown]
  - Sinusitis [Unknown]
  - Fatigue [Unknown]
  - Ocular hyperaemia [Unknown]
  - Eye swelling [Unknown]
